FAERS Safety Report 4975211-7 (Version None)
Quarter: 2006Q2

REPORT INFORMATION
  Report Type: 
  Country: None (occurrence: None)
  Receive Date: 20060411
  Receipt Date: 20060403
  Transmission Date: 20061013
  Serious: Yes (Hospitalization)
  Sender: FDA-Public Use
  Company Number: 223753

PATIENT
  Age: 65 Year
  Sex: Female

DRUGS (4)
  1. MABTHERA                     (RITUXIMAB) CONC FOR SOLUTION FOR INFUSIO [Suspect]
     Indication: RHEUMATOID ARTHRITIS
  2. ENBREL [Concomitant]
  3. HUMIRA [Concomitant]
  4. METHOTREXATE [Concomitant]

REACTIONS (1)
  - PULMONARY EMBOLISM [None]
